FAERS Safety Report 10411228 (Version 2)
Quarter: 2014Q3

REPORT INFORMATION
  Report Type: Spontaneous
  Country: US (occurrence: US)
  Receive Date: 20140826
  Receipt Date: 20140826
  Transmission Date: 20150326
  Serious: No
  Sender: FDA-Public Use
  Company Number: US-ASTRAZENECA-2013SE84699

PATIENT
  Age: 66 Year
  Sex: Female
  Weight: 40.8 kg

DRUGS (1)
  1. SYMBICORT [Suspect]
     Active Substance: BUDESONIDE\FORMOTEROL FUMARATE DIHYDRATE
     Indication: CHRONIC OBSTRUCTIVE PULMONARY DISEASE
     Dosage: 160/4.5,  2 PUFFS BID
     Route: 055
     Dates: start: 2012

REACTIONS (4)
  - Device misuse [Unknown]
  - Visual impairment [Unknown]
  - Drug effect decreased [Unknown]
  - Dyspnoea [Unknown]
